FAERS Safety Report 8588539-9 (Version None)
Quarter: 2012Q3

REPORT INFORMATION
  Report Type: 
  Country: None (occurrence: None)
  Receive Date: 20120813
  Receipt Date: 20120730
  Transmission Date: 20120928
  Serious: No
  Sender: FDA-Public Use
  Company Number: US-JNJFOC-20120801393

PATIENT
  Age: 38 Year
  Sex: Female

DRUGS (7)
  1. FENTANYL-100 [Suspect]
     Indication: INTERVERTEBRAL DISC PROTRUSION
     Route: 062
     Dates: start: 20120701
  2. UNKNOWN MULTIPLE MEDICATION [Concomitant]
     Route: 065
  3. FENTANYL-100 [Suspect]
     Indication: MUSCLE INJURY
     Route: 062
     Dates: start: 20120701
  4. FENTANYL-100 [Suspect]
     Indication: CARPAL TUNNEL SYNDROME
     Route: 062
     Dates: start: 20120701
  5. FENTANYL-100 [Suspect]
     Indication: TENDONITIS
     Route: 062
     Dates: start: 20120701
  6. FENTANYL-100 [Suspect]
     Indication: MUSCLE DISORDER
     Route: 062
     Dates: start: 20120701
  7. FENTANYL-100 [Suspect]
     Indication: BURSITIS
     Route: 062
     Dates: start: 20120701

REACTIONS (2)
  - PRODUCT QUALITY ISSUE [None]
  - WRONG TECHNIQUE IN DRUG USAGE PROCESS [None]
